FAERS Safety Report 6106961-7 (Version None)
Quarter: 2009Q1

REPORT INFORMATION
  Report Type: 
  Country: None (occurrence: None)
  Receive Date: 20090309
  Receipt Date: 20090303
  Transmission Date: 20090719
  Serious: No
  Sender: FDA-Public Use
  Company Number: US-JNJFOC-20090300968

PATIENT
  Sex: Male
  Weight: 81.65 kg

DRUGS (6)
  1. FENTANYL TRANSDERMAL SYSTEM [Suspect]
     Indication: BACK PAIN
     Route: 062
  2. FENTANYL TRANSDERMAL SYSTEM [Suspect]
     Indication: NECK PAIN
     Dosage: 25UG/HR 2 EVERY 72 HOURS
     Route: 062
  3. FENTANYL TRANSDERMAL SYSTEM [Suspect]
     Indication: MUSCULOSKELETAL PAIN
     Route: 062
  4. METHADONE HCL [Concomitant]
     Indication: BACK PAIN
     Route: 048
  5. METHADONE HCL [Concomitant]
     Indication: NECK PAIN
     Route: 048
  6. METHADONE HCL [Concomitant]
     Indication: MUSCULOSKELETAL PAIN
     Dosage: DAILY
     Route: 048

REACTIONS (1)
  - DRUG DOSE OMISSION [None]
